FAERS Safety Report 15428918 (Version 5)
Quarter: 2019Q1

REPORT INFORMATION
  Report Type: Spontaneous
  Country: US (occurrence: US)
  Receive Date: 20180926
  Receipt Date: 20190107
  Transmission Date: 20190417
  Serious: Yes (Hospitalization, Other)
  Sender: FDA-Public Use
  Company Number: US-RADIUS HEALTH, INC.-2018US001868

PATIENT
  Sex: Female
  Weight: 99.77 kg

DRUGS (1)
  1. TYMLOS [Suspect]
     Active Substance: ABALOPARATIDE
     Indication: OSTEOPOROSIS POSTMENOPAUSAL
     Dosage: 80 MCG, QD
     Route: 058
     Dates: start: 201806

REACTIONS (5)
  - Abdominal operation [Unknown]
  - Blood iron decreased [Unknown]
  - Ill-defined disorder [Unknown]
  - Colon cancer [Unknown]
  - Haemoglobin decreased [Unknown]
